FAERS Safety Report 13422264 (Version 1)
Quarter: 2017Q2

REPORT INFORMATION
  Report Type: Spontaneous
  Country: SE (occurrence: SE)
  Receive Date: 20170410
  Receipt Date: 20170410
  Transmission Date: 20170830
  Serious: Yes (Hospitalization)
  Sender: FDA-Public Use
  Company Number: SE-ORION CORPORATION ORION PHARMA-SPIR2017-0008

PATIENT
  Age: 68 Year
  Sex: Female

DRUGS (4)
  1. SPIRONOLACTONE (TRADE NAME UNKNOWN) [Suspect]
     Active Substance: SPIRONOLACTONE
     Dosage: STRENGTH: 25 MG
     Route: 065
  2. FURIX [Suspect]
     Active Substance: FUROSEMIDE
     Dosage: STRENGTH: 40 MG
     Route: 065
  3. IMDUR [Suspect]
     Active Substance: ISOSORBIDE MONONITRATE
     Dosage: STRENGTH: 60 MG
     Route: 065
  4. METOPROLOL (TRADE NAME UNKNOWN) [Suspect]
     Active Substance: METOPROLOL
     Dosage: STRENGTH: 50 MG
     Route: 065

REACTIONS (2)
  - Blood creatinine increased [Recovered/Resolved]
  - Hypotension [Recovered/Resolved]
